FAERS Safety Report 21418316 (Version 1)
Quarter: 2022Q4

REPORT INFORMATION
  Report Type: Spontaneous
  Country: US (occurrence: None)
  Receive Date: 20221006
  Receipt Date: 20221006
  Transmission Date: 20230113
  Serious: Yes (Other)
  Sender: FDA-Public Use
  Company Number: 2022A334628

PATIENT
  Age: 56 Year
  Sex: Female
  Weight: 205.5 kg

DRUGS (45)
  1. OMEPRAZOLE [Suspect]
     Active Substance: OMEPRAZOLE
     Indication: Gastric ulcer
     Route: 065
     Dates: start: 201404, end: 201410
  2. OMEPRAZOLE [Suspect]
     Active Substance: OMEPRAZOLE
     Indication: Gastric ulcer
     Route: 065
     Dates: start: 201412, end: 201503
  3. OMEPRAZOLE [Suspect]
     Active Substance: OMEPRAZOLE
     Indication: Gastric ulcer
     Route: 065
     Dates: start: 201504, end: 201507
  4. OMEPRAZOLE [Suspect]
     Active Substance: OMEPRAZOLE
     Indication: Gastric ulcer
     Route: 065
     Dates: start: 201611
  5. PREVACID [Suspect]
     Active Substance: LANSOPRAZOLE
     Indication: Gastrooesophageal reflux disease
     Route: 048
     Dates: start: 200003, end: 200007
  6. PREVACID [Suspect]
     Active Substance: LANSOPRAZOLE
     Indication: Gastrooesophageal reflux disease
     Route: 048
     Dates: start: 200003, end: 200007
  7. PREVACID [Suspect]
     Active Substance: LANSOPRAZOLE
     Indication: Gastrooesophageal reflux disease
     Route: 065
     Dates: start: 200008, end: 200106
  8. PREVACID [Suspect]
     Active Substance: LANSOPRAZOLE
     Indication: Gastrooesophageal reflux disease
     Route: 065
     Dates: start: 200008, end: 200106
  9. LISINOPRIL [Concomitant]
     Active Substance: LISINOPRIL
     Indication: Blood pressure measurement
  10. ROPINIROLE [Concomitant]
     Active Substance: ROPINIROLE
     Indication: Restless legs syndrome
  11. GABAPENTIN [Concomitant]
     Active Substance: GABAPENTIN
     Indication: Restless legs syndrome
     Route: 048
     Dates: start: 201404, end: 201410
  12. GABAPENTIN [Concomitant]
     Active Substance: GABAPENTIN
     Indication: Restless legs syndrome
     Route: 048
     Dates: start: 201404, end: 201505
  13. GABAPENTIN [Concomitant]
     Active Substance: GABAPENTIN
     Indication: Restless legs syndrome
     Route: 048
     Dates: start: 201504, end: 201507
  14. GABAPENTIN [Concomitant]
     Active Substance: GABAPENTIN
     Indication: Restless legs syndrome
     Route: 048
     Dates: start: 201611
  15. FUROSEMIDE [Concomitant]
     Active Substance: FUROSEMIDE
     Indication: Diuretic therapy
  16. ASPIRIN [Concomitant]
     Active Substance: ASPIRIN
     Indication: Atrioventricular block
  17. VITAMIN C [Concomitant]
     Active Substance: ASCORBIC ACID
     Indication: Hypovitaminosis
     Route: 048
     Dates: start: 201404, end: 201410
  18. VITAMIN C [Concomitant]
     Active Substance: ASCORBIC ACID
     Indication: Hypovitaminosis
     Route: 048
     Dates: start: 201404, end: 201505
  19. VITAMIN C [Concomitant]
     Active Substance: ASCORBIC ACID
     Indication: Hypovitaminosis
     Route: 048
     Dates: start: 201504, end: 201507
  20. VITAMIN C [Concomitant]
     Active Substance: ASCORBIC ACID
     Indication: Hypovitaminosis
     Route: 048
     Dates: start: 201611
  21. VITAMIN D [Concomitant]
     Active Substance: VITAMIN D NOS
     Indication: Hypovitaminosis
     Route: 048
     Dates: start: 201404, end: 201410
  22. VITAMIN D [Concomitant]
     Active Substance: VITAMIN D NOS
     Indication: Hypovitaminosis
     Route: 048
     Dates: start: 201404, end: 201505
  23. VITAMIN D [Concomitant]
     Active Substance: VITAMIN D NOS
     Indication: Hypovitaminosis
     Route: 048
     Dates: start: 201504, end: 201507
  24. VITAMIN D [Concomitant]
     Active Substance: VITAMIN D NOS
     Indication: Hypovitaminosis
     Route: 048
     Dates: start: 201611
  25. NYSTATIN [Concomitant]
     Active Substance: NYSTATIN
     Indication: Miliaria
  26. ZANTAC [Concomitant]
     Active Substance: RANITIDINE HYDROCHLORIDE
  27. FAMOTIDINE [Concomitant]
     Active Substance: FAMOTIDINE
  28. CELEBREX [Concomitant]
     Active Substance: CELECOXIB
  29. AMLODIPINE [Concomitant]
     Active Substance: AMLODIPINE BESYLATE
  30. CLONAZEPAM [Concomitant]
     Active Substance: CLONAZEPAM
  31. CYMBALTA [Concomitant]
     Active Substance: DULOXETINE HYDROCHLORIDE
  32. METFORMIN [Concomitant]
     Active Substance: METFORMIN HYDROCHLORIDE
  33. WARFARIN [Concomitant]
     Active Substance: WARFARIN
  34. GLIPIZIDE [Concomitant]
     Active Substance: GLIPIZIDE
  35. MELOXICAM [Concomitant]
     Active Substance: MELOXICAM
     Route: 048
     Dates: start: 201404, end: 201410
  36. MELOXICAM [Concomitant]
     Active Substance: MELOXICAM
     Route: 048
     Dates: start: 201404, end: 201505
  37. MELOXICAM [Concomitant]
     Active Substance: MELOXICAM
     Route: 048
     Dates: start: 201504, end: 201507
  38. MELOXICAM [Concomitant]
     Active Substance: MELOXICAM
     Route: 048
     Dates: start: 201611
  39. FLUOXETINE [Concomitant]
     Active Substance: FLUOXETINE HYDROCHLORIDE
  40. PRAVASTATIN [Concomitant]
     Active Substance: PRAVASTATIN
  41. TRAMADOL [Concomitant]
     Active Substance: TRAMADOL
  42. BACLOFEN [Concomitant]
     Active Substance: BACLOFEN
  43. CELECOXIB [Concomitant]
     Active Substance: CELECOXIB
  44. TIZANIDINE [Concomitant]
     Active Substance: TIZANIDINE
  45. MELATONIN [Concomitant]
     Active Substance: MELATONIN

REACTIONS (1)
  - Chronic kidney disease [Not Recovered/Not Resolved]

NARRATIVE: CASE EVENT DATE: 20150101
